FAERS Safety Report 19506323 (Version 5)
Quarter: 2021Q3

REPORT INFORMATION
  Report Type: Report from Study
  Country: DE (occurrence: DE)
  Receive Date: 20210708
  Receipt Date: 20210907
  Transmission Date: 20211014
  Serious: Yes (Death, Other)
  Sender: FDA-Public Use
  Company Number: DE-BRISTOL-MYERS SQUIBB COMPANY-BMS-2021-065476

PATIENT
  Age: 59 Year
  Sex: Male
  Weight: 64 kg

DRUGS (14)
  1. ELOTUZUMAB. [Suspect]
     Active Substance: ELOTUZUMAB
     Indication: PLASMA CELL MYELOMA
     Dosage: 800 MILLIGRAM, CYCLICAL
     Route: 042
     Dates: start: 20210505, end: 20210615
  2. CALCIUM + VITAMIN D [CALCIUM CARBONATE;COLECALCIFEROL] [Concomitant]
     Active Substance: CALCIUM CARBONATE\CHOLECALCIFEROL
     Indication: VITAMIN D DEFICIENCY
     Dosage: 1 X 1 DOSAGE FORM IN 1 DAY, 100MG/880 IE
     Route: 048
     Dates: start: 20210514, end: 20210704
  3. ELOTUZUMAB. [Suspect]
     Active Substance: ELOTUZUMAB
     Dosage: 680 MILLIGRAM, CYCLICAL
     Route: 042
     Dates: start: 20210622, end: 20210629
  4. ACETYLSALICYLIC ACID [Concomitant]
     Active Substance: ASPIRIN
     Indication: THROMBOSIS
     Dosage: 1 X 100 MILLIGRAM IN 1 DAY
     Route: 048
     Dates: start: 20210629, end: 20210704
  5. CARFILZOMIB [Suspect]
     Active Substance: CARFILZOMIB
     Dosage: X 36 MILLIGRAM/METRE SQ. IN CYCLICAL PER 69.48 MILLIGRAM
     Route: 042
     Dates: start: 20210601, end: 20210630
  6. CARFILZOMIB [Suspect]
     Active Substance: CARFILZOMIB
     Indication: PLASMA CELL MYELOMA
     Dosage: X 20 MILLIGRAM/METRE SQ. IN CYCLICAL PER 39.6 MILLIGRAM
     Route: 042
     Dates: start: 20210505, end: 20210520
  7. DEXAMETHASONE. [Suspect]
     Active Substance: DEXAMETHASONE
     Indication: PLASMA CELL MYELOMA
     Dosage: 28 MILLIGRAM, CYCLICAL
     Route: 048
     Dates: start: 20210505, end: 20210615
  8. FENTANYL. [Concomitant]
     Active Substance: FENTANYL
     Indication: PAIN
     Dosage: 75 MICROGRAM EVERY 3DAYS
     Route: 062
     Dates: start: 20210528
  9. LENALIDOMIDE [Suspect]
     Active Substance: LENALIDOMIDE
     Indication: PLASMA CELL MYELOMA
     Dosage: 25 MILLIGRAM ON DAY 1?21
     Route: 048
     Dates: start: 20210505, end: 20210526
  10. CAPROS AKUT [Concomitant]
     Indication: PAIN
     Dosage: 10 MILLIGRAM, WHEN NEEDED
     Route: 048
     Dates: start: 20210528
  11. TOREM [TORASEMIDE] [Concomitant]
     Active Substance: TORSEMIDE
     Indication: OEDEMA PERIPHERAL
     Dosage: DOSE 5?25 MG 100MG, FREQUENCY 2?1?0
     Route: 048
     Dates: start: 20210504, end: 20210704
  12. LENALIDOMIDE [Suspect]
     Active Substance: LENALIDOMIDE
     Dosage: 25 MILLIGRAM, CYCLICAL
     Route: 048
     Dates: start: 20210702, end: 20210702
  13. DEXAMETHASONE. [Suspect]
     Active Substance: DEXAMETHASONE
     Indication: PLASMA CELL MYELOMA
     Dosage: 8 MILLIGRAM, CYCLICAL
     Route: 042
     Dates: start: 20210505, end: 20210629
  14. NICOTINE. [Concomitant]
     Active Substance: NICOTINE
     Indication: TOBACCO ABUSE
     Dosage: 1 X 1 DOSAGE FORM IN 1 DAY, STRENGTH 2, ONCE DAILY
     Route: 062
     Dates: start: 20210419, end: 20210704

REACTIONS (1)
  - Death [Fatal]

NARRATIVE: CASE EVENT DATE: 20210704
